FAERS Safety Report 24920327 (Version 1)
Quarter: 2025Q1

REPORT INFORMATION
  Report Type: Report from Study
  Country: US (occurrence: US)
  Receive Date: 20250204
  Receipt Date: 20250204
  Transmission Date: 20250408
  Serious: No
  Sender: EXELIXIS
  Company Number: US-EXELIXIS-CABO-24073605

PATIENT
  Age: 66 Year
  Sex: Male

DRUGS (47)
  1. CABOMETYX [Suspect]
     Active Substance: CABOZANTINIB S-MALATE
     Indication: Renal cell carcinoma
     Dosage: 40 MG, QD
     Route: 048
     Dates: start: 20240126, end: 20240129
  2. CABOMETYX [Suspect]
     Active Substance: CABOZANTINIB S-MALATE
     Dosage: 40 MG, QD
     Route: 048
     Dates: end: 202402
  3. GABAPENTIN [Concomitant]
     Active Substance: GABAPENTIN
  4. METHYLPREDNISOLONE [Concomitant]
     Active Substance: METHYLPREDNISOLONE
  5. PERCOCET [Concomitant]
     Active Substance: ACETAMINOPHEN\OXYCODONE HYDROCHLORIDE
  6. LOSARTAN POTASSIUM [Concomitant]
     Active Substance: LOSARTAN POTASSIUM
  7. ASPIRIN [Concomitant]
     Active Substance: ASPIRIN
  8. LEVOTHYROXINE [Concomitant]
     Active Substance: LEVOTHYROXINE
  9. SIMVASTATIN [Concomitant]
     Active Substance: SIMVASTATIN
  10. LIDOCAINE [Concomitant]
     Active Substance: LIDOCAINE
  11. NYSTATIN [Concomitant]
     Active Substance: NYSTATIN
  12. ANTACID [Concomitant]
     Active Substance: ALUMINUM HYDROXIDE\CALCIUM CARBONATE\DIMETHICONE\MAGNESIUM HYDROXIDE
  13. DOCAINE [Concomitant]
  14. ALBUTEROL SULFATE [Concomitant]
     Active Substance: ALBUTEROL SULFATE
  15. AMLODIPINE BESYLATE [Concomitant]
     Active Substance: AMLODIPINE BESYLATE
  16. AMOXICILLIN\CLAVULANIC ACID [Concomitant]
     Active Substance: AMOXICILLIN\CLAVULANIC ACID
  17. AZITHROMYCIN [Concomitant]
     Active Substance: AZITHROMYCIN
  18. BENZONATATE [Concomitant]
     Active Substance: BENZONATATE
  19. CELECOXIB [Concomitant]
     Active Substance: CELECOXIB
  20. CEPHALEXIN [Concomitant]
     Active Substance: CEPHALEXIN
  21. CETIRIZINE [Concomitant]
     Active Substance: CETIRIZINE HYDROCHLORIDE
  22. CHLORHEXIDINE [Concomitant]
     Active Substance: CHLORHEXIDINE
  23. DEXAMETHASONE [Concomitant]
     Active Substance: DEXAMETHASONE
  24. FAMOTIDINE [Concomitant]
     Active Substance: FAMOTIDINE
  25. FLUCELVAX NOS [Concomitant]
     Active Substance: INFLUENZA A VIRUS A/BRISBANE/10/2010 (H1N1) ANTIGEN (MDCK CELL DERIVED, PROPIOLACTONE INACTIVATED)\I
  26. FLUTICASONE [Concomitant]
     Active Substance: FLUTICASONE
  27. HYDROCHLOROTHIAZIDE [Concomitant]
     Active Substance: HYDROCHLOROTHIAZIDE
  28. ACETAMINOPHEN\HYDROCODONE [Concomitant]
     Active Substance: ACETAMINOPHEN\HYDROCODONE
  29. HYDROCODONE [Concomitant]
     Active Substance: HYDROCODONE
  30. Chlorphen [Concomitant]
  31. HYDROMET [Concomitant]
     Active Substance: HOMATROPINE METHYLBROMIDE\HYDROCODONE BITARTRATE
  32. INLYTA [Concomitant]
     Active Substance: AXITINIB
  33. LEVOFLOXACIN [Concomitant]
     Active Substance: LEVOFLOXACIN
  34. MONTELUKAST [Concomitant]
     Active Substance: MONTELUKAST
  35. MYRBETRIQ [Concomitant]
     Active Substance: MIRABEGRON
  36. NEBIVOLOL [Concomitant]
     Active Substance: NEBIVOLOL
  37. OMEPRAZOLE [Concomitant]
     Active Substance: OMEPRAZOLE
  38. ONDANSETRON [Concomitant]
     Active Substance: ONDANSETRON
  39. OXYCODONE AND ACETAMINOPHEN [Concomitant]
     Active Substance: ACETAMINOPHEN\OXYCODONE HYDROCHLORIDE
  40. PANTOPRAZOLE [Concomitant]
     Active Substance: PANTOPRAZOLE
  41. PHENAZOPYRIDINE [Concomitant]
     Active Substance: PHENAZOPYRIDINE
  42. PREDNISONE [Concomitant]
     Active Substance: PREDNISONE
  43. PREVNAR [Concomitant]
     Active Substance: PNEUMOCOCCAL 7-VALENT CONJUGATE VACCINE (DIPHTHERIA CRM197 PROTEIN)
  44. UNSPECIFIED INGREDIENT [Concomitant]
     Active Substance: UNSPECIFIED INGREDIENT
  45. SUTAB [Concomitant]
     Active Substance: MAGNESIUM SULFATE\POTASSIUM CHLORIDE\SODIUM SULFATE
  46. TRAMADOL [Concomitant]
     Active Substance: TRAMADOL
  47. TRIAMCINOLONE [Concomitant]
     Active Substance: TRIAMCINOLONE

REACTIONS (4)
  - Adverse drug reaction [Unknown]
  - Oral mucosal blistering [Unknown]
  - Rash [Unknown]
  - Skin exfoliation [Unknown]

NARRATIVE: CASE EVENT DATE: 20240127
